FAERS Safety Report 16840741 (Version 3)
Quarter: 2021Q4

REPORT INFORMATION
  Report Type: Spontaneous
  Country: US (occurrence: US)
  Receive Date: 20190923
  Receipt Date: 20211130
  Transmission Date: 20220303
  Serious: Yes (Other)
  Sender: FDA-Public Use
  Company Number: US-GILEAD-2019-0429426

PATIENT
  Age: 51 Year
  Sex: Male
  Weight: 54.422 kg

DRUGS (33)
  1. VIREAD [Suspect]
     Active Substance: TENOFOVIR DISOPROXIL FUMARATE
     Indication: HIV infection
     Dosage: UNK
     Route: 048
     Dates: start: 2001, end: 2019
  2. VIREAD [Suspect]
     Active Substance: TENOFOVIR DISOPROXIL FUMARATE
     Dosage: UNK
     Route: 065
     Dates: start: 20030129, end: 201309
  3. VIREAD [Suspect]
     Active Substance: TENOFOVIR DISOPROXIL FUMARATE
     Dosage: UNK
     Route: 048
     Dates: start: 20130909, end: 201905
  4. GENVOYA [Concomitant]
     Active Substance: COBICISTAT\ELVITEGRAVIR\EMTRICITABINE\TENOFOVIR ALAFENAMIDE FUMARATE
  5. CLONAZEPAM [Concomitant]
     Active Substance: CLONAZEPAM
  6. DIAZEPAM [Concomitant]
     Active Substance: DIAZEPAM
  7. VIRAMUNE [Concomitant]
     Active Substance: NEVIRAPINE
  8. VIRAMUNE XR [Concomitant]
     Active Substance: NEVIRAPINE
  9. ZIAGEN [Concomitant]
     Active Substance: ABACAVIR SULFATE
  10. ZOLOFT [Concomitant]
     Active Substance: SERTRALINE HYDROCHLORIDE
  11. ZERIT [Concomitant]
     Active Substance: STAVUDINE
  12. ZESTRIL [Concomitant]
     Active Substance: LISINOPRIL
  13. ENALAPRIL MALEATE [Concomitant]
     Active Substance: ENALAPRIL MALEATE
  14. ENOXAPARIN [Concomitant]
     Active Substance: ENOXAPARIN
  15. ESZOPICLONE [Concomitant]
     Active Substance: ESZOPICLONE
  16. GABAPENTIN [Concomitant]
     Active Substance: GABAPENTIN
  17. GEMFIBROZIL [Concomitant]
     Active Substance: GEMFIBROZIL
  18. GLIPIZIDE [Concomitant]
     Active Substance: GLIPIZIDE
  19. LIPITOR [Concomitant]
     Active Substance: ATORVASTATIN CALCIUM
  20. LYRICA [Concomitant]
     Active Substance: PREGABALIN
  21. METFORMIN HYDROCHLORIDE [Concomitant]
     Active Substance: METFORMIN HYDROCHLORIDE
  22. METHADONE [Concomitant]
     Active Substance: METHADONE HYDROCHLORIDE
  23. MOTRIN [Concomitant]
     Active Substance: IBUPROFEN
  24. OXYCODONE HYDROCHLORIDE [Concomitant]
     Active Substance: OXYCODONE HYDROCHLORIDE
  25. OXYCONTIN [Concomitant]
     Active Substance: OXYCODONE HYDROCHLORIDE
  26. MINERALS\VITAMINS [Concomitant]
     Active Substance: MINERALS\VITAMINS
  27. PROCHLORPERAZINE [Concomitant]
     Active Substance: PROCHLORPERAZINE
  28. PROTEGRA [Concomitant]
  29. RANITIDINE [Concomitant]
     Active Substance: RANITIDINE
  30. SAVELLA [Concomitant]
     Active Substance: MILNACIPRAN HYDROCHLORIDE
  31. TESTOSTERONE CYPIONATE [Concomitant]
     Active Substance: TESTOSTERONE CYPIONATE
  32. HYDROCHLOROTHIAZIDE\TRIAMTERENE [Concomitant]
     Active Substance: HYDROCHLOROTHIAZIDE\TRIAMTERENE
  33. VIDEX EC [Concomitant]
     Active Substance: DIDANOSINE

REACTIONS (15)
  - Osteoporosis [Not Recovered/Not Resolved]
  - Chronic kidney disease [Not Recovered/Not Resolved]
  - Acute kidney injury [Not Recovered/Not Resolved]
  - Renal failure [Not Recovered/Not Resolved]
  - Quality of life decreased [Not Recovered/Not Resolved]
  - Loss of personal independence in daily activities [Not Recovered/Not Resolved]
  - Fatigue [Not Recovered/Not Resolved]
  - Pain [Not Recovered/Not Resolved]
  - Mobility decreased [Not Recovered/Not Resolved]
  - Emotional distress [Not Recovered/Not Resolved]
  - Anxiety [Not Recovered/Not Resolved]
  - Anhedonia [Not Recovered/Not Resolved]
  - Economic problem [Not Recovered/Not Resolved]
  - Fear [Not Recovered/Not Resolved]
  - Depression [Not Recovered/Not Resolved]

NARRATIVE: CASE EVENT DATE: 20100610
